FAERS Safety Report 10835764 (Version 1)
Quarter: 2015Q1

REPORT INFORMATION
  Report Type: Spontaneous
  Country: US (occurrence: None)
  Receive Date: 20150218
  Receipt Date: 20150218
  Transmission Date: 20150721
  Serious: Yes (Life-Threatening, Hospitalization)
  Sender: FDA-Public Use
  Company Number: 2015EDG00006

PATIENT
  Age: 18 Year
  Sex: Male

DRUGS (5)
  1. TRAZODONE [Concomitant]
     Active Substance: TRAZODONE HYDROCHLORIDE
  2. NALTREXONE (NALTREXONE) [Concomitant]
     Active Substance: NALTREXONE
  3. FLUOXETINE (FLUOXETINE) UNKNOWN [Suspect]
     Active Substance: FLUOXETINE HYDROCHLORIDE
  4. NAPROXEN (NAPROXEN) [Concomitant]
     Active Substance: NAPROXEN
  5. 4-FLUOROAMPHETAMINE [Suspect]
     Active Substance: 4-FLUOROAMPHETAMINE

REACTIONS (19)
  - Cardiogenic shock [None]
  - Hypotension [None]
  - Cardiomyopathy [None]
  - Toxicity to various agents [None]
  - Electrocardiogram ST segment depression [None]
  - Stress cardiomyopathy [None]
  - Chest discomfort [None]
  - Sinus tachycardia [None]
  - Hyperhidrosis [None]
  - Pulmonary oedema [None]
  - Nausea [None]
  - Drug screen positive [None]
  - Drug interaction [None]
  - Acute respiratory failure [None]
  - Vomiting [None]
  - Pneumonia aspiration [None]
  - Pulseless electrical activity [None]
  - Dyspnoea [None]
  - Aspartate aminotransferase increased [None]
